FAERS Safety Report 18116815 (Version 2)
Quarter: 2020Q3

REPORT INFORMATION
  Report Type: Spontaneous
  Country: US (occurrence: US)
  Receive Date: 20200806
  Receipt Date: 20200814
  Transmission Date: 20201103
  Serious: Yes (Hospitalization)
  Sender: FDA-Public Use
  Company Number: US-TEVA-2020-US-1809979

PATIENT
  Age: 6 Week
  Sex: Male

DRUGS (4)
  1. NYSTATIN. [Suspect]
     Active Substance: NYSTATIN
     Indication: CANDIDA INFECTION
     Dosage: CONTAINED PROPYLENE GLYCOL
     Route: 050
  2. SODIUM CITRATE/CITRIC ACID [Suspect]
     Active Substance: CITRIC ACID MONOHYDRATE\SODIUM CITRATE
     Indication: RENAL TUBULAR ACIDOSIS
     Dosage: 8.8 MEQ/KG/DAY (10 ML 3 TIMES DAILY); BICARBONATE SUPPLEMENTATION FORMULATION INCLUDED CITRIC ACI...
     Route: 048
  3. SODIUM ACETATE. [Concomitant]
     Active Substance: SODIUM ACETATE
     Indication: PRODUCT USED FOR UNKNOWN INDICATION
     Route: 042
  4. CITRIC ACID\POTASSIUM CITRATE [Suspect]
     Active Substance: CITRIC ACID MONOHYDRATE\POTASSIUM CITRATE
     Indication: RENAL TUBULAR ACIDOSIS
     Dosage: 4.4 MEQ/KG/DAY (2.5ML THREE TIMES A DAY); BICARBONATE SUPPLEMENTATION FORMULATION INCLUDED CITRIC...
     Route: 048

REACTIONS (5)
  - Overdose [Unknown]
  - Neurotoxicity [Recovered/Resolved]
  - Mental status changes [Recovered/Resolved]
  - Blood osmolarity increased [Recovered/Resolved]
  - Toxicity to various agents [Recovered/Resolved]
